FAERS Safety Report 6179078-3 (Version None)
Quarter: 2009Q2

REPORT INFORMATION
  Report Type: 
  Country: None (occurrence: None)
  Receive Date: 20090505
  Receipt Date: 20090428
  Transmission Date: 20091009
  Serious: Yes (Death)
  Sender: FDA-Public Use
  Company Number: US-CELGENEUS-163-21880-09031477

PATIENT
  Sex: Male

DRUGS (1)
  1. REVLIMID [Suspect]
     Indication: MYELODYSPLASTIC SYNDROME
     Route: 048
     Dates: start: 20080701

REACTIONS (5)
  - BACTERAEMIA [None]
  - DIARRHOEA [None]
  - HYPOKALAEMIA [None]
  - PANCYTOPENIA [None]
  - PYREXIA [None]
